FAERS Safety Report 6670893-6 (Version None)
Quarter: 2010Q2

REPORT INFORMATION
  Report Type: 
  Country: None (occurrence: None)
  Receive Date: 20100407
  Receipt Date: 20100322
  Transmission Date: 20101027
  Serious: No
  Sender: FDA-Public Use
  Company Number: US-B.I. PHARMACEUTICALS,INC./RIDGEFIELD-2010-BP-03351BP

PATIENT
  Sex: Female

DRUGS (4)
  1. CLONIDINE HCL [Suspect]
     Indication: HYPERTENSION
     Dosage: 0.1 MG
     Route: 048
     Dates: start: 20060101
  2. CLONIDINE HCL [Suspect]
     Dosage: 0.2 MG
     Route: 048
  3. CLONIDINE HCL [Suspect]
     Dosage: 0.2 MG
     Route: 048
  4. CLONIDINE HCL [Suspect]
     Dosage: 0.4 MG
     Route: 048
     Dates: start: 20090101

REACTIONS (1)
  - HYPERTENSION [None]
